FAERS Safety Report 8232108-7 (Version None)
Quarter: 2012Q1

REPORT INFORMATION
  Report Type: 
  Country: None (occurrence: None)
  Receive Date: 20120323
  Receipt Date: 20120220
  Transmission Date: 20120608
  Serious: Yes (Hospitalization, Other)
  Sender: FDA-Public Use
  Company Number: US-ROCHE-1051763

PATIENT
  Sex: Female

DRUGS (1)
  1. ZELBORAF [Suspect]
     Indication: PRODUCT USED FOR UNKNOWN INDICATION

REACTIONS (3)
  - BLOOD CREATININE INCREASED [None]
  - RESPIRATORY TRACT INFECTION [None]
  - DEHYDRATION [None]
